FAERS Safety Report 19589484 (Version 1)
Quarter: 2021Q3

REPORT INFORMATION
  Report Type: Report from Study
  Country: FR (occurrence: FR)
  Receive Date: 20210721
  Receipt Date: 20210721
  Transmission Date: 20211014
  Serious: Yes (Other)
  Sender: FDA-Public Use
  Company Number: FR-SHIRE-FR201738217

PATIENT
  Age: 71 Year
  Sex: Female

DRUGS (15)
  1. OROCAL VITAMINE D3 [CALCIUM CARBONATE;COLECALCIFEROL] [Concomitant]
     Indication: CALCIUM DEFICIENCY
     Dosage: 500 MILLIGRAM, BID
     Route: 048
     Dates: start: 20200804
  2. TEDUGLUTIDE [Suspect]
     Active Substance: TEDUGLUTIDE
     Dosage: 2.8 MILLIGRAM (DAILY DOSE 0.05 MG/KG), TED DOSES PER WEEK 7
     Route: 065
     Dates: start: 20170421
  3. TEDUGLUTIDE [Suspect]
     Active Substance: TEDUGLUTIDE
     Indication: SHORT-BOWEL SYNDROME
     Dosage: 2.6 MILLIGRAM (DAILY DOSE 0.05 MG/KG), TED DOSES PER WEEK 7
     Route: 065
     Dates: start: 20170130, end: 20170421
  4. TEDUGLUTIDE [Suspect]
     Active Substance: TEDUGLUTIDE
     Indication: SHORT-BOWEL SYNDROME
     Dosage: 2.6 MILLIGRAM (DAILY DOSE 0.05 MG/KG), TED DOSES PER WEEK 7
     Route: 065
     Dates: start: 20170130, end: 20170421
  5. KARDEGIC [Concomitant]
     Active Substance: ASPIRIN DL-LYSINE
     Indication: THROMBOSIS PROPHYLAXIS
     Dosage: 75 MILLIGRAM, QD
     Route: 048
     Dates: start: 20200804
  6. VANCOMYCIN [Concomitant]
     Active Substance: VANCOMYCIN
     Indication: INFECTION PROPHYLAXIS
     Dosage: 250 MILLIGRAM, THRICE A DAY?ONCE A WEEK/MONTH
     Route: 048
     Dates: start: 20200203
  7. TEDUGLUTIDE [Suspect]
     Active Substance: TEDUGLUTIDE
     Dosage: 2.8 MILLIGRAM (DAILY DOSE 0.05 MG/KG), TED DOSES PER WEEK 7
     Route: 065
     Dates: start: 20170421
  8. TEDUGLUTIDE [Suspect]
     Active Substance: TEDUGLUTIDE
     Indication: SHORT-BOWEL SYNDROME
     Dosage: 2.6 MILLIGRAM (DAILY DOSE 0.05 MG/KG), TED DOSES PER WEEK 7
     Route: 065
     Dates: start: 20170130, end: 20170421
  9. OROCAL VITAMINE D3 [CALCIUM CARBONATE;COLECALCIFEROL] [Concomitant]
     Indication: SHORT-BOWEL SYNDROME
  10. PARACETAMOL [Concomitant]
     Active Substance: ACETAMINOPHEN
     Indication: HEADACHE
     Dosage: 1 TAB
     Route: 048
     Dates: start: 202010
  11. TEDUGLUTIDE [Suspect]
     Active Substance: TEDUGLUTIDE
     Indication: SHORT-BOWEL SYNDROME
     Dosage: 2.6 MILLIGRAM (DAILY DOSE 0.05 MG/KG), TED DOSES PER WEEK 7
     Route: 065
     Dates: start: 20170130, end: 20170421
  12. TEDUGLUTIDE [Suspect]
     Active Substance: TEDUGLUTIDE
     Dosage: 2.8 MILLIGRAM (DAILY DOSE 0.05 MG/KG), TED DOSES PER WEEK 7
     Route: 065
     Dates: start: 20170421
  13. TEDUGLUTIDE [Suspect]
     Active Substance: TEDUGLUTIDE
     Dosage: 2.8 MILLIGRAM (DAILY DOSE 0.05 MG/KG), TED DOSES PER WEEK 7
     Route: 065
     Dates: start: 20170421
  14. LOPERAMIDE [Concomitant]
     Active Substance: LOPERAMIDE
     Indication: PROPHYLAXIS
     Dosage: 4 TABLET, TID
     Route: 048
     Dates: start: 20200204
  15. OROCAL VITAMINE D3 [CALCIUM CARBONATE;COLECALCIFEROL] [Concomitant]
     Indication: PROPHYLAXIS

REACTIONS (2)
  - Nausea [Recovered/Resolved]
  - Nephrolithiasis [Recovered/Resolved]

NARRATIVE: CASE EVENT DATE: 201702
